FAERS Safety Report 8292311-7 (Version None)
Quarter: 2012Q2

REPORT INFORMATION
  Report Type: 
  Country: None (occurrence: None)
  Receive Date: 20120417
  Receipt Date: 20120409
  Transmission Date: 20120825
  Serious: Yes (Disabling, Other)
  Sender: FDA-Public Use
  Company Number: US-GILEAD-2012-0053374

PATIENT
  Sex: Male

DRUGS (1)
  1. VIREAD [Suspect]
     Dosage: 300 MG, UNK
     Route: 065
     Dates: end: 20090201

REACTIONS (9)
  - LIPOMA [None]
  - DISCOMFORT [None]
  - HEADACHE [None]
  - BACK PAIN [None]
  - INTERVERTEBRAL DISC PROTRUSION [None]
  - NECK PAIN [None]
  - DYSPNOEA [None]
  - MUSCULOSKELETAL DISCOMFORT [None]
  - DYSPHAGIA [None]
